FAERS Safety Report 5251965-X (Version None)
Quarter: 2007Q1

REPORT INFORMATION
  Report Type: 
  Country: None (occurrence: None)
  Receive Date: 20070228
  Receipt Date: 20070214
  Transmission Date: 20070707
  Serious: No
  Sender: FDA-Public Use
  Company Number: SK-ELI_LILLY_AND_COMPANY-SK200702002894

PATIENT
  Sex: Male

DRUGS (2)
  1. ZYPREXA [Suspect]
  2. LEPONEX                                 /SCH/ [Concomitant]
     Dosage: UNK, UNK
     Route: 048

REACTIONS (1)
  - LEUKOCYTOSIS [None]
